FAERS Safety Report 8172487-2 (Version None)
Quarter: 2012Q1

REPORT INFORMATION
  Report Type: 
  Country: None (occurrence: None)
  Receive Date: 20120229
  Receipt Date: 20120221
  Transmission Date: 20120608
  Serious: Yes (Other)
  Sender: FDA-Public Use
  Company Number: US-BAYER-2012-014456

PATIENT
  Age: 25 Year
  Sex: Female

DRUGS (1)
  1. MIRENA [Suspect]
     Indication: CONTRACEPTION
     Dosage: 20 ?G/D, CONT
     Route: 015
     Dates: start: 20100706, end: 20120206

REACTIONS (4)
  - DEVICE DISLOCATION [None]
  - MUSCLE SPASMS [None]
  - DYSPAREUNIA [None]
  - ABDOMINAL PAIN LOWER [None]
